FAERS Safety Report 9384588 (Version 1)
Quarter: 2013Q3

REPORT INFORMATION
  Report Type: Report from Study
  Country: KP (occurrence: KP)
  Receive Date: 20130705
  Receipt Date: 20130705
  Transmission Date: 20140515
  Serious: Yes (Hospitalization)
  Sender: FDA-Public Use
  Company Number: KP-GENZYME-THYM-1003884

PATIENT
  Age: 48 Year
  Sex: Male

DRUGS (6)
  1. THYMOGLOBULINE [Suspect]
     Indication: IMMUNOSUPPRESSION
     Dosage: 143.75 MG, QD
     Route: 042
     Dates: start: 20130529, end: 20130602
  2. MOSAPRIDE [Concomitant]
     Indication: PAIN PROPHYLAXIS
     Dosage: 15 MG, QD
     Route: 048
     Dates: start: 20130527
  3. MAGNESIUM [Concomitant]
     Indication: HYPOMAGNESAEMIA
     Dosage: 2582 MG, QD
     Route: 048
     Dates: start: 20130603
  4. CYCLOSPORINE [Concomitant]
     Indication: IMMUNOSUPPRESSION
     Dosage: 400 MG, QD
     Route: 048
     Dates: start: 20130603
  5. PREDNISOLONE [Concomitant]
     Indication: IMMUNOSUPPRESSION
     Dosage: 5 MG, QD
     Route: 048
     Dates: start: 20130607
  6. METFORMIN [Concomitant]
     Indication: PROPHYLAXIS
     Dosage: 500 MG, QD
     Route: 048
     Dates: start: 20130613

REACTIONS (4)
  - Blood bilirubin increased [Unknown]
  - Aspartate aminotransferase increased [Unknown]
  - Alanine aminotransferase increased [Unknown]
  - Febrile neutropenia [Not Recovered/Not Resolved]
